FAERS Safety Report 7710761-1 (Version None)
Quarter: 2011Q3

REPORT INFORMATION
  Report Type: 
  Country: None (occurrence: None)
  Receive Date: 20110825
  Receipt Date: 20110815
  Transmission Date: 20111222
  Serious: Yes (Other)
  Sender: FDA-Public Use
  Company Number: US-BAXTER-2011BH027005

PATIENT
  Weight: 1 kg

DRUGS (6)
  1. FENTANYL CITRATE [Suspect]
     Route: 064
  2. BUPIVACAINE HCL [Suspect]
     Route: 064
  3. BUPIVACAINE HCL [Suspect]
     Route: 064
  4. FENTANYL CITRATE [Suspect]
     Indication: MATERNAL EXPOSURE DURING PREGNANCY
     Route: 064
  5. BUPIVACAINE, UNSPECIFIED [Suspect]
     Indication: MATERNAL EXPOSURE DURING PREGNANCY
     Route: 064
  6. BUPIVACAINE HCL [Suspect]
     Route: 064

REACTIONS (5)
  - RESPIRATORY DISTRESS [None]
  - PREMATURE BABY [None]
  - NEONATAL RESPIRATORY DISTRESS SYNDROME [None]
  - MATERNAL EXPOSURE DURING PREGNANCY [None]
  - MATERNAL DRUGS AFFECTING FOETUS [None]
